FAERS Safety Report 7010005-2 (Version None)
Quarter: 2010Q3

REPORT INFORMATION
  Report Type: 
  Country: None (occurrence: None)
  Receive Date: 20100921
  Receipt Date: 20100902
  Transmission Date: 20110219
  Serious: Yes (Other)
  Sender: FDA-Public Use
  Company Number: ABLIT-10-0479

PATIENT
  Age: 58 Year
  Sex: Female

DRUGS (2)
  1. ABRAXANE [Suspect]
     Indication: BREAST CANCER METASTATIC
     Dates: start: 20070101
  2. BEVACIZUMAB (BEVACIZUMAB) [Suspect]
     Indication: BREAST CANCER METASTATIC
     Dates: start: 20070101

REACTIONS (4)
  - CATARACT OPERATION [None]
  - LACRIMATION INCREASED [None]
  - MACULAR OEDEMA [None]
  - VISUAL IMPAIRMENT [None]
